FAERS Safety Report 8158566-4 (Version None)
Quarter: 2012Q1

REPORT INFORMATION
  Report Type: 
  Country: None (occurrence: None)
  Receive Date: 20120223
  Receipt Date: 20120216
  Transmission Date: 20120608
  Serious: Yes (Hospitalization, Other)
  Sender: FDA-Public Use
  Company Number: US-BAYER-2012-009269

PATIENT
  Age: 80 Year
  Sex: Female

DRUGS (2)
  1. NEXAVAR [Suspect]
     Dosage: 400 MG, BID
  2. NEXAVAR [Suspect]
     Indication: RENAL CELL CARCINOMA
     Dosage: 200 MG, BID
     Dates: start: 20120115, end: 20120202

REACTIONS (12)
  - MEMORY IMPAIRMENT [None]
  - CHEST PAIN [None]
  - RENAL CELL CARCINOMA [None]
  - COUGH [None]
  - AMNESIA [None]
  - BLOOD COUNT ABNORMAL [None]
  - DYSPNOEA [None]
  - ASTHENIA [None]
  - FATIGUE [None]
  - TUMOUR PAIN [None]
  - CONFUSIONAL STATE [None]
  - CONSTIPATION [None]
